FAERS Safety Report 7812000-X (Version None)
Quarter: 2011Q4

REPORT INFORMATION
  Report Type: 
  Country: None (occurrence: None)
  Receive Date: 20111013
  Receipt Date: 20111006
  Transmission Date: 20120403
  Serious: Yes (Hospitalization)
  Sender: FDA-Public Use
  Company Number: US-AMGEN-USASP2011051666

PATIENT
  Age: 66 Year
  Sex: Male

DRUGS (1)
  1. ENBREL [Suspect]
     Indication: PSORIASIS
     Dosage: 50 MG, 2 TIMES/WK
     Dates: start: 20050101

REACTIONS (7)
  - PSORIASIS [None]
  - OBESITY SURGERY [None]
  - DYSPEPSIA [None]
  - INJECTION SITE ERYTHEMA [None]
  - FATIGUE [None]
  - ASTHENIA [None]
  - INJECTION SITE REACTION [None]
